FAERS Safety Report 7357646-0 (Version None)
Quarter: 2011Q1

REPORT INFORMATION
  Report Type: 
  Country: None (occurrence: None)
  Receive Date: 20110317
  Receipt Date: 20110311
  Transmission Date: 20110831
  Serious: Yes (Other)
  Sender: FDA-Public Use
  Company Number: US-ELI_LILLY_AND_COMPANY-US201102001735

PATIENT
  Age: 70 Year
  Sex: Male
  Weight: 82.54 kg

DRUGS (8)
  1. EMEND [Concomitant]
  2. FLUCONAZOLE [Concomitant]
  3. FOLIC ACID [Concomitant]
     Route: 048
     Dates: start: 20110119, end: 20110204
  4. DEXAMETHASONE [Concomitant]
     Route: 048
     Dates: start: 20110130, end: 20110201
  5. LORTAB [Concomitant]
  6. ALIMTA [Suspect]
     Indication: NON-SMALL CELL LUNG CANCER
     Dosage: 500 MG/M2, UNK
     Route: 042
     Dates: start: 20110131, end: 20110131
  7. METFORMIN HCL [Concomitant]
  8. VITAMIN B-12 [Concomitant]
     Dosage: UNK, UNK
     Route: 058
     Dates: start: 20110119, end: 20110131

REACTIONS (2)
  - BLOOD PRESSURE DECREASED [None]
  - THROAT TIGHTNESS [None]
